FAERS Safety Report 8447288-8 (Version None)
Quarter: 2012Q2

REPORT INFORMATION
  Report Type: 
  Country: None (occurrence: None)
  Receive Date: 20120619
  Receipt Date: 20120612
  Transmission Date: 20120825
  Serious: Yes (Hospitalization)
  Sender: FDA-Public Use
  Company Number: PHHY2012CA049798

PATIENT
  Age: 54 Year
  Sex: Female

DRUGS (4)
  1. CYCLOSPORINE [Suspect]
     Indication: RENAL TRANSPLANT
     Dosage: 150 MG, BID
  2. PREDNISONE [Concomitant]
     Dosage: 60 MG, DAILY
  3. MYCOPHENOLIC ACID [Concomitant]
     Indication: RENAL TRANSPLANT
     Dosage: 360 MG, BID
  4. PREDNISONE [Concomitant]
     Dosage: 5 MG, DAILY

REACTIONS (17)
  - MALAISE [None]
  - METABOLIC ACIDOSIS [None]
  - BRONCHIAL SECRETION RETENTION [None]
  - LUNG INFILTRATION [None]
  - RENAL IMPAIRMENT [None]
  - RENAL FAILURE ACUTE [None]
  - LEGIONELLA INFECTION [None]
  - NAUSEA [None]
  - DIARRHOEA [None]
  - HEADACHE [None]
  - LEUKOCYTOSIS [None]
  - TRANSAMINASES INCREASED [None]
  - NEUTROPENIA [None]
  - PYREXIA [None]
  - VOMITING [None]
  - HYPONATRAEMIA [None]
  - POLYNEUROPATHY [None]
